FAERS Safety Report 17655299 (Version 1)
Quarter: 2020Q2

REPORT INFORMATION
  Report Type: Spontaneous
  Country: CA (occurrence: CA)
  Receive Date: 20200410
  Receipt Date: 20200410
  Transmission Date: 20200713
  Serious: Yes (Life-Threatening, Other)
  Sender: FDA-Public Use
  Company Number: CA-ROCHE-2319191

PATIENT
  Age: 37 Year
  Sex: Female

DRUGS (3)
  1. XOLAIR [Suspect]
     Active Substance: OMALIZUMAB
     Indication: CHRONIC SPONTANEOUS URTICARIA
     Route: 058
     Dates: start: 20190509
  2. REACTINE [CETIRIZINE HYDROCHLORIDE] [Concomitant]
     Active Substance: CETIRIZINE HYDROCHLORIDE
     Indication: PRODUCT USED FOR UNKNOWN INDICATION
     Route: 048
     Dates: start: 2018
  3. RUPALL [Concomitant]
     Active Substance: RUPATADINE FUMARATE
     Indication: PRODUCT USED FOR UNKNOWN INDICATION
     Route: 048
     Dates: start: 2018

REACTIONS (12)
  - Paraesthesia [Recovering/Resolving]
  - Limb discomfort [Unknown]
  - Muscle spasms [Recovering/Resolving]
  - Pharyngitis streptococcal [Unknown]
  - Pruritus [Unknown]
  - Stress [Unknown]
  - Facial spasm [Recovering/Resolving]
  - Feeling abnormal [Recovering/Resolving]
  - Urticaria [Recovered/Resolved]
  - Muscle tightness [Recovering/Resolving]
  - Feeling hot [Recovering/Resolving]
  - Sleep disorder [Unknown]

NARRATIVE: CASE EVENT DATE: 20190509
